FAERS Safety Report 15757857 (Version 2)
Quarter: 2018Q4

REPORT INFORMATION
  Report Type: Report from Study
  Country: CA (occurrence: CA)
  Receive Date: 20181225
  Receipt Date: 20181231
  Transmission Date: 20190205
  Serious: Yes (Other)
  Sender: FDA-Public Use
  Company Number: CA-ROCHE-2232505

PATIENT
  Age: 72 Year
  Sex: Female

DRUGS (17)
  1. RITUXAN [Suspect]
     Active Substance: RITUXIMAB
     Indication: RHEUMATOID ARTHRITIS
     Dosage: DAY 1,15;
     Route: 042
     Dates: start: 20181212
  2. TYLENOL [Concomitant]
     Active Substance: ACETAMINOPHEN
     Indication: PREMEDICATION
     Route: 048
     Dates: start: 20181212
  3. HYDROXYCHLOROQUINE [Concomitant]
     Active Substance: HYDROXYCHLOROQUINE
  4. BENADRYL [Concomitant]
     Active Substance: DIPHENHYDRAMINE HYDROCHLORIDE
     Indication: PREMEDICATION
     Route: 048
     Dates: start: 20181212
  5. SOLU-MEDROL [Concomitant]
     Active Substance: METHYLPREDNISOLONE SODIUM SUCCINATE
     Indication: PREMEDICATION
     Route: 042
     Dates: start: 20181212
  6. CITALOPRAM [Concomitant]
     Active Substance: CITALOPRAM HYDROBROMIDE
  7. LORAZEPAM. [Concomitant]
     Active Substance: LORAZEPAM
  8. EURO-FOLIC [Concomitant]
     Active Substance: FOLIC ACID
  9. PRAVASTATIN. [Concomitant]
     Active Substance: PRAVASTATIN
  10. NAPROXEN. [Concomitant]
     Active Substance: NAPROXEN
     Route: 065
  11. NOVO-GESIC (CANADA) [Concomitant]
  12. EURO-DOCUSATE C [Concomitant]
  13. METHOTREXATE. [Concomitant]
     Active Substance: METHOTREXATE
  14. ALENDRONATE [Concomitant]
     Active Substance: ALENDRONATE SODIUM
  15. PANTOLOC [Concomitant]
     Active Substance: PANTOPRAZOLE SODIUM
  16. AMLODIPINE [Concomitant]
     Active Substance: AMLODIPINE BESYLATE
  17. METOPROLOL SLOW RELEASE [Concomitant]

REACTIONS (9)
  - Oxygen saturation decreased [Unknown]
  - Dysgeusia [Recovered/Resolved]
  - Blood pressure systolic abnormal [Unknown]
  - Blood pressure systolic increased [Unknown]
  - Sensory disturbance [Recovered/Resolved]
  - Myalgia [Unknown]
  - Infusion related reaction [Unknown]
  - Angina pectoris [Recovered/Resolved]
  - Fatigue [Unknown]

NARRATIVE: CASE EVENT DATE: 20181212
